FAERS Safety Report 5234259-8 (Version None)
Quarter: 2007Q1

REPORT INFORMATION
  Report Type: 
  Country: None (occurrence: None)
  Receive Date: 20070209
  Receipt Date: 20070129
  Transmission Date: 20070707
  Serious: Yes (Life-Threatening, Hospitalization, Other)
  Sender: FDA-Public Use
  Company Number: HQWYE900330JAN07

PATIENT
  Age: 67 Year
  Sex: Male

DRUGS (8)
  1. INIPOMP [Interacting]
     Dosage: ^DAILY DOSE 3 DF^
     Route: 048
  2. INIPOMP [Interacting]
     Route: 048
  3. INIPOMP [Interacting]
     Dosage: ^DOSE INCREASED^
     Route: 048
     Dates: start: 20061020
  4. TAREG [Concomitant]
     Indication: ESSENTIAL HYPERTENSION
     Route: 048
  5. GLUCOSE [Concomitant]
     Dosage: ^DF^
     Route: 042
  6. LOVENOX [Concomitant]
     Indication: PROPHYLAXIS
     Dosage: UNKNOWN
  7. PREVISCAN [Interacting]
     Indication: PROPHYLAXIS
     Dosage: 20 MG (FREQUENCY UNSPECIFIED)
     Route: 048
  8. AUGMENTIN '125' [Suspect]
     Route: 048

REACTIONS (5)
  - ANAEMIA [None]
  - DRUG INTERACTION [None]
  - GASTRIC ULCER [None]
  - GASTROINTESTINAL HAEMORRHAGE [None]
  - SKIN NECROSIS [None]
